FAERS Safety Report 24789761 (Version 1)
Quarter: 2024Q4

REPORT INFORMATION
  Report Type: Spontaneous
  Country: CA (occurrence: CA)
  Receive Date: 20241230
  Receipt Date: 20241230
  Transmission Date: 20250115
  Serious: Yes (Hospitalization, Other)
  Sender: AZURITY PHARMACEUTICALS
  Company Number: CA-AZURITY PHARMACEUTICALS, INC.-AZR202412-001410

PATIENT
  Age: 32 Year
  Sex: Male

DRUGS (1)
  1. AMPHETAMINE SULFATE [Suspect]
     Active Substance: AMPHETAMINE SULFATE
     Indication: Product used for unknown indication
     Dosage: 5-8 AMPHETAMINE TABLETS DAILY
     Route: 048

REACTIONS (7)
  - Cardiogenic shock [Recovering/Resolving]
  - Renal injury [Recovering/Resolving]
  - Thrombosis [Recovering/Resolving]
  - Ventricular tachycardia [Recovering/Resolving]
  - Dilated cardiomyopathy [Recovering/Resolving]
  - Intentional product misuse [Unknown]
  - Drug abuse [Unknown]
